FAERS Safety Report 4876499-3 (Version None)
Quarter: 2005Q4

REPORT INFORMATION
  Report Type: 
  Country: None (occurrence: None)
  Receive Date: 20051206
  Receipt Date: 20051003
  Transmission Date: 20060501
  Serious: No
  Sender: FDA-Public Use
  Company Number: USA0510109788

PATIENT
  Age: 49 Year
  Sex: Female

DRUGS (7)
  1. CYMBALTA [Suspect]
     Indication: DEPRESSION
     Dosage: 90 MG DAY
     Dates: start: 20040901
  2. ZOLOFT [Concomitant]
  3. LITHIUM [Concomitant]
  4. LEXAPRO [Concomitant]
  5. REMERON [Concomitant]
  6. SEROQUEL [Concomitant]
  7. LAMICTAL [Concomitant]

REACTIONS (7)
  - DEPRESSION [None]
  - FEELING ABNORMAL [None]
  - HOT FLUSH [None]
  - MANIA [None]
  - NERVOUSNESS [None]
  - THINKING ABNORMAL [None]
  - TREMOR [None]
